FAERS Safety Report 4609564-6 (Version None)
Quarter: 2005Q1

REPORT INFORMATION
  Report Type: 
  Country: None (occurrence: None)
  Receive Date: 20050314
  Receipt Date: 20050314
  Transmission Date: 20050727
  Serious: Yes (Hospitalization)
  Sender: FDA-Public Use
  Company Number: None

PATIENT
  Sex: Male

DRUGS (2)
  1. DILANTIN [Suspect]
     Indication: CONVULSION
     Dosage: 100 MG
  2. DILANTIN [Suspect]
     Indication: EPILEPSY
     Dosage: 100 MG

REACTIONS (2)
  - CONVULSION [None]
  - PHARMACEUTICAL PRODUCT COUNTERFEIT [None]
